FAERS Safety Report 8548532-9 (Version None)
Quarter: 2012Q3

REPORT INFORMATION
  Report Type: 
  Country: None (occurrence: None)
  Receive Date: 20120730
  Receipt Date: 20120724
  Transmission Date: 20120928
  Serious: No
  Sender: FDA-Public Use
  Company Number: US-BAYER-2012-075021

PATIENT
  Age: 72 Year
  Sex: Male
  Weight: 107.94 kg

DRUGS (6)
  1. METFORMIN HYDROCHLORIDE [Concomitant]
  2. ALEVE (CAPLET) [Suspect]
     Indication: ANALGESIC THERAPY
     Dosage: 1 DF, BID
     Route: 048
     Dates: start: 20120717, end: 20120724
  3. ASPIRIN [Concomitant]
     Indication: ISCHAEMIC HEART DISEASE PROPHYLAXIS
  4. SIMVASTATIN [Concomitant]
  5. ENALAPRIL MALEATE [Concomitant]
  6. VITAMIN B-12 [Concomitant]

REACTIONS (1)
  - PAIN [None]
